FAERS Safety Report 6580990-1 (Version None)
Quarter: 2010Q1

REPORT INFORMATION
  Report Type: 
  Country: None (occurrence: None)
  Receive Date: 20100215
  Receipt Date: 20100201
  Transmission Date: 20100710
  Serious: Yes (Other)
  Sender: FDA-Public Use
  Company Number: FR-BRISTOL-MYERS SQUIBB COMPANY-14973200

PATIENT
  Age: 36 Year
  Sex: Male

DRUGS (3)
  1. ETOPOSIDE [Suspect]
     Indication: SEMINOMA
     Dosage: 100MG/M2/DAY FOR FIVE DAYS
  2. CISPLATIN [Suspect]
     Indication: SEMINOMA
     Dosage: 20MG/M2/DAY FOR 5 DAYS
  3. PREDNISOLONE [Suspect]
     Dosage: RECEIVED MORE THAN 420MG

REACTIONS (2)
  - ARTERIAL THROMBOSIS [None]
  - PERIPHERAL ISCHAEMIA [None]
